FAERS Safety Report 18173508 (Version 2)
Quarter: 2020Q4

REPORT INFORMATION
  Report Type: Spontaneous
  Country: US (occurrence: US)
  Receive Date: 20200820
  Receipt Date: 20201224
  Transmission Date: 20210113
  Serious: No
  Sender: FDA-Public Use
  Company Number: US-BIOGEN-2020BI00909079

PATIENT
  Sex: Female

DRUGS (4)
  1. TECFIDERA [Suspect]
     Active Substance: DIMETHYL FUMARATE
     Indication: MULTIPLE SCLEROSIS
     Route: 065
     Dates: start: 20131008, end: 20131031
  2. TECFIDERA [Suspect]
     Active Substance: DIMETHYL FUMARATE
     Route: 048
     Dates: start: 2013
  3. TECFIDERA [Suspect]
     Active Substance: DIMETHYL FUMARATE
     Route: 065
  4. TECFIDERA [Suspect]
     Active Substance: DIMETHYL FUMARATE
     Route: 048
     Dates: start: 2015, end: 202009

REACTIONS (13)
  - Temperature intolerance [Unknown]
  - Dizziness [Recovered/Resolved]
  - White blood cell count decreased [Unknown]
  - Abdominal discomfort [Recovered/Resolved]
  - Vitamin D decreased [Unknown]
  - Vitamin B12 decreased [Unknown]
  - Flushing [Recovered/Resolved]
  - Gastrointestinal disorder [Recovered/Resolved]
  - Product dose omission issue [Unknown]
  - Accidental overdose [Unknown]
  - Balance disorder [Unknown]
  - Hemiparesis [Unknown]
  - Paraesthesia [Unknown]
